FAERS Safety Report 6036453-5 (Version None)
Quarter: 2009Q1

REPORT INFORMATION
  Report Type: 
  Country: None (occurrence: None)
  Receive Date: 20090112
  Receipt Date: 20090106
  Transmission Date: 20090719
  Serious: Yes (Hospitalization)
  Sender: FDA-Public Use
  Company Number: 2009AL000030

PATIENT
  Age: 49 Year
  Sex: Male

DRUGS (6)
  1. DIGOXIN [Suspect]
     Indication: CARDIAC DISORDER
     Dosage: 0.25MG, DAILY, PO
     Route: 048
     Dates: start: 20060201, end: 20080101
  2. LASIX [Concomitant]
  3. CARVEDILOL [Concomitant]
  4. COMPAZINE [Concomitant]
  5. LANTUS [Concomitant]
  6. PROZAC [Concomitant]

REACTIONS (10)
  - ASTHENIA [None]
  - BRADYCARDIA [None]
  - CHILLS [None]
  - FATIGUE [None]
  - GASTROENTERITIS [None]
  - MALAISE [None]
  - NAUSEA [None]
  - RENAL FAILURE [None]
  - SINUS BRADYCARDIA [None]
  - VOMITING [None]
